FAERS Safety Report 24861542 (Version 1)
Quarter: 2025Q1

REPORT INFORMATION
  Report Type: Report from Study
  Country: CA (occurrence: CA)
  Receive Date: 20250120
  Receipt Date: 20250120
  Transmission Date: 20250409
  Serious: Yes (Other)
  Sender: ALEXION PHARMACEUTICALS
  Company Number: CA-AstraZeneca-CH-00787076A

PATIENT

DRUGS (7)
  1. ANIFROLUMAB [Suspect]
     Active Substance: ANIFROLUMAB
     Indication: Systemic lupus erythematosus
     Route: 065
  2. MEDROL [Concomitant]
     Active Substance: METHYLPREDNISOLONE
  3. METHOTREXATE [Concomitant]
     Active Substance: METHOTREXATE
  4. FOLIC ACID [Concomitant]
     Active Substance: FOLIC ACID
  5. OMEPRAZOLE [Concomitant]
     Active Substance: OMEPRAZOLE
  6. ROSUVASTATIN [Concomitant]
     Active Substance: ROSUVASTATIN
  7. AMLODIPINE [Concomitant]
     Active Substance: AMLODIPINE BESYLATE

REACTIONS (3)
  - Alopecia [Unknown]
  - Cough [Not Recovered/Not Resolved]
  - Systemic lupus erythematosus [Unknown]
